FAERS Safety Report 5930692-7 (Version None)
Quarter: 2008Q4

REPORT INFORMATION
  Report Type: 
  Country: None (occurrence: None)
  Receive Date: 20081024
  Receipt Date: 20081024
  Transmission Date: 20090506
  Serious: Yes (Other)
  Sender: FDA-Public Use
  Company Number: None

PATIENT
  Sex: Male

DRUGS (2)
  1. ENBREL [Suspect]
     Indication: PSORIASIS
     Dosage: 50MG EVERY WEEK SUBCUTANEOUSLY
     Route: 058
     Dates: start: 20041216, end: 20080516
  2. ENBREL [Suspect]
     Indication: PSORIATIC ARTHROPATHY
     Dosage: 50MG EVERY WEEK SUBCUTANEOUSLY
     Route: 058
     Dates: start: 20041216, end: 20080516

REACTIONS (1)
  - MULTIPLE MYELOMA [None]
